FAERS Safety Report 20805619 (Version 2)
Quarter: 2022Q2

REPORT INFORMATION
  Report Type: Spontaneous
  Country: US (occurrence: US)
  Receive Date: 20220510
  Receipt Date: 20220519
  Transmission Date: 20220721
  Serious: Yes (Hospitalization, Other)
  Sender: FDA-Public Use
  Company Number: US-BEH-2022145161

PATIENT
  Age: 66 Year
  Sex: Female

DRUGS (5)
  1. HIZENTRA [Suspect]
     Active Substance: HUMAN IMMUNOGLOBULIN G
     Indication: Immunodeficiency common variable
     Dosage: 9 GRAM, QW
     Route: 058
     Dates: start: 20190809
  2. HIZENTRA [Suspect]
     Active Substance: HUMAN IMMUNOGLOBULIN G
     Dosage: UNK
     Route: 058
  3. ASPIRIN [Concomitant]
     Active Substance: ASPIRIN
     Dosage: 325 MILLIGRAM
     Route: 065
  4. ELIQUIS [Concomitant]
     Active Substance: APIXABAN
     Dosage: 2.5 MILLIGRAM
     Route: 065
  5. EPINEPHRINE [Concomitant]
     Active Substance: EPINEPHRINE
     Route: 065

REACTIONS (5)
  - Spleen ischaemia [Not Recovered/Not Resolved]
  - Infection [Not Recovered/Not Resolved]
  - Aneurysm [Not Recovered/Not Resolved]
  - Procedural complication [Not Recovered/Not Resolved]
  - Drug ineffective [Unknown]

NARRATIVE: CASE EVENT DATE: 20220201
